FAERS Safety Report 10914054 (Version 1)
Quarter: 2015Q1

REPORT INFORMATION
  Report Type: Spontaneous
  Country: US (occurrence: None)
  Receive Date: 20150310
  Receipt Date: 20150310
  Transmission Date: 20150721
  Serious: Yes (Hospitalization)
  Sender: FDA-Public Use
  Company Number: AUR-APL-2015-01980

PATIENT
  Age: 70 Year
  Sex: Female
  Weight: 79 kg

DRUGS (8)
  1. XANAX [Concomitant]
     Active Substance: ALPRAZOLAM
  2. ATENOLOL. [Suspect]
     Active Substance: ATENOLOL
     Indication: CHEST PAIN
     Route: 048
  3. MIRALAX (MACROGOL) [Concomitant]
  4. METOPROLOL [Suspect]
     Active Substance: METOPROLOL
     Indication: PRODUCT USED FOR UNKNOWN INDICATION
     Route: 048
     Dates: start: 201103, end: 201103
  5. NEXIUM [Suspect]
     Active Substance: ESOMEPRAZOLE MAGNESIUM
     Indication: GASTROOESOPHAGEAL REFLUX DISEASE
  6. BENICAR HCT [Concomitant]
     Active Substance: HYDROCHLOROTHIAZIDE\OLMESARTAN MEDOXOMIL
  7. ATENOLOL. [Suspect]
     Active Substance: ATENOLOL
     Indication: HEART RATE INCREASED
     Route: 048
  8. CARDIZEM LA (DILTIAZEM HYDROCHLORIDE) [Concomitant]

REACTIONS (20)
  - Cardiac disorder [None]
  - Musculoskeletal discomfort [None]
  - Irritable bowel syndrome [None]
  - Bowel movement irregularity [None]
  - Body height decreased [None]
  - Heart rate increased [None]
  - Panic attack [None]
  - Back disorder [None]
  - Muscle spasms [None]
  - Pollakiuria [None]
  - Abdominal discomfort [None]
  - Intentional product misuse [None]
  - Chest pain [None]
  - Hypertension [None]
  - Osteoarthritis [None]
  - Bladder discomfort [None]
  - Abdominal pain upper [None]
  - Insomnia [None]
  - Chest discomfort [None]
  - Hearing impaired [None]

NARRATIVE: CASE EVENT DATE: 201103
